FAERS Safety Report 6852334-9 (Version None)
Quarter: 2010Q3

REPORT INFORMATION
  Report Type: 
  Country: None (occurrence: None)
  Receive Date: 20100717
  Receipt Date: 20071114
  Transmission Date: 20110219
  Serious: No
  Sender: FDA-Public Use
  Company Number: US-PFIZER INC-2007096179

PATIENT
  Sex: Female
  Weight: 73.6 kg

DRUGS (9)
  1. CHANTIX [Suspect]
     Indication: SMOKING CESSATION THERAPY
     Dates: start: 20071110
  2. LIPITOR [Concomitant]
  3. ATACAND [Concomitant]
  4. ZOLOFT [Concomitant]
  5. SENSIPAR [Concomitant]
  6. CALCITRIOL [Concomitant]
     Dosage: 3 EVERY 1 WEEKS
  7. DILTIAZEM [Concomitant]
  8. CLONAZEPAM [Concomitant]
  9. ALL OTHER THERAPEUTIC PRODUCTS [Concomitant]

REACTIONS (2)
  - DYSGEUSIA [None]
  - HYPERSOMNIA [None]
